FAERS Safety Report 4544897-3 (Version None)
Quarter: 2004Q4

REPORT INFORMATION
  Report Type: 
  Country: None (occurrence: None)
  Receive Date: 20041230
  Receipt Date: 20041222
  Transmission Date: 20050328
  Serious: Yes (Hospitalization, Other)
  Sender: FDA-Public Use
  Company Number: 2004-12-1155

PATIENT
  Age: 49 Year
  Sex: Female

DRUGS (7)
  1. PEG-INTRON [Suspect]
     Indication: HEPATITIS C
     Dosage: SUBCUTANEOUS
     Route: 058
     Dates: start: 20040411, end: 20041222
  2. RIBAVIRIN [Suspect]
     Indication: HEPATITIS C
     Dosage: ORAL
     Route: 048
     Dates: start: 20040411, end: 20041222
  3. PREMARIN [Concomitant]
  4. THIAZIDE (NOS) [Concomitant]
  5. LOSEC [Concomitant]
  6. ZOPICLONE [Concomitant]
  7. CODEINE [Concomitant]

REACTIONS (5)
  - ATTENTION-SEEKING BEHAVIOUR [None]
  - CONVULSION [None]
  - DYSKINESIA [None]
  - MUSCLE TWITCHING [None]
  - SYNCOPE [None]
